FAERS Safety Report 18664644 (Version 6)
Quarter: 2022Q3

REPORT INFORMATION
  Report Type: Spontaneous
  Country: GB (occurrence: GB)
  Receive Date: 20201225
  Receipt Date: 20220916
  Transmission Date: 20221027
  Serious: Yes (Other)
  Sender: FDA-Public Use
  Company Number: GB-BIOVITRUM-2020GB7900

PATIENT
  Age: 56 Year
  Sex: Female

DRUGS (16)
  1. ORFADIN [Suspect]
     Active Substance: NITISINONE
     Indication: Alkaptonuria
     Dosage: 2 MG
     Dates: start: 2014
  2. IBUPROFEN [Concomitant]
     Active Substance: IBUPROFEN
     Dates: start: 2014
  3. IBUPROFEN [Concomitant]
     Active Substance: IBUPROFEN
     Dates: start: 2015
  4. IBUPROFEN [Concomitant]
     Active Substance: IBUPROFEN
     Dates: start: 2016
  5. IBUPROFEN [Concomitant]
     Active Substance: IBUPROFEN
     Dates: start: 2018
  6. IBUPROFEN [Concomitant]
     Active Substance: IBUPROFEN
     Dosage: 200 MG
     Dates: start: 2015
  7. IBUPROFEN [Concomitant]
     Active Substance: IBUPROFEN
     Dates: start: 2014
  8. IBUPROFEN [Concomitant]
     Active Substance: IBUPROFEN
     Dates: start: 2017
  9. ACETAMINOPHEN [Concomitant]
     Active Substance: ACETAMINOPHEN
     Dates: start: 2014
  10. ETORICOXIB [Concomitant]
     Active Substance: ETORICOXIB
     Dosage: 60 MG
     Dates: start: 2014
  11. ETORICOXIB [Concomitant]
     Active Substance: ETORICOXIB
     Dates: start: 2015
  12. CALCEOG [Concomitant]
     Dosage: 500 MG
     Dates: start: 2015
  13. ARCOXIA [Concomitant]
     Active Substance: ETORICOXIB
     Dosage: 60 MG
     Dates: start: 2016
  14. ALENDRONIC ACID [Concomitant]
     Active Substance: ALENDRONIC ACID
     Dates: start: 2015
  15. ALENDRONIC ACID [Concomitant]
     Active Substance: ALENDRONIC ACID
     Dates: start: 2016
  16. OMEPRAZOLE [Concomitant]
     Active Substance: OMEPRAZOLE
     Dosage: 20 MG
     Dates: start: 2015

REACTIONS (3)
  - Cataract [Not Recovered/Not Resolved]
  - Lenticular opacities [Not Recovered/Not Resolved]
  - Amino acid level increased [Not Recovered/Not Resolved]

NARRATIVE: CASE EVENT DATE: 20150101
